FAERS Safety Report 9250334 (Version 1)
Quarter: 2013Q1

REPORT INFORMATION
  Report Type: Spontaneous
  Country: US (occurrence: None)
  Receive Date: 20130305
  Receipt Date: 20130305
  Transmission Date: 20140127
  Serious: Yes (Hospitalization)
  Sender: FDA-Public Use
  Company Number: 163-21880-12053001

PATIENT
  Age: 65 Year
  Sex: Male

DRUGS (5)
  1. REVLIMID (LENALIDOMIDE) [Suspect]
     Indication: PLASMA CELL MYELOMA
     Dosage: X 21 CAPS
     Route: 048
     Dates: start: 20111215
  2. OSCAL D3 (CALCITE D) [Concomitant]
  3. LEVOFLOXACIN [Concomitant]
  4. ZOMETA (ZOLEDRONIC ACID) [Concomitant]
  5. PREDNISONE (PREDNISONE) [Concomitant]

REACTIONS (1)
  - Pneumonia [None]
